FAERS Safety Report 4362490-2 (Version None)
Quarter: 2004Q2

REPORT INFORMATION
  Report Type: 
  Country: None (occurrence: None)
  Receive Date: 20040518
  Receipt Date: 20040507
  Transmission Date: 20050107
  Serious: Yes (Other)
  Sender: FDA-Public Use
  Company Number: 04P-163-0259933-00

PATIENT
  Age: 51 Year
  Sex: Male
  Weight: 76.2043 kg

DRUGS (4)
  1. HUMIRA 40 MG/ 0.8 ML PRE-FILLED SYRINGE (HUMIRA) (ADALIMUMAB) [Suspect]
     Indication: RHEUMATOID ARTHRITIS
     Dosage: 40 MG, 1 IN 2 WK, SUBCUTANEOUS
     Route: 058
     Dates: start: 20040116
  2. ATENOLOL [Concomitant]
  3. SIMVASTATIN [Concomitant]
  4. ASPIRIN TAB [Concomitant]

REACTIONS (2)
  - BLOOD GLUCOSE INCREASED [None]
  - GALLBLADDER DISORDER [None]
